FAERS Safety Report 21709322 (Version 1)
Quarter: 2022Q4

REPORT INFORMATION
  Report Type: Spontaneous
  Country: HU (occurrence: HU)
  Receive Date: 20221210
  Receipt Date: 20221210
  Transmission Date: 20230112
  Serious: Yes (Hospitalization)
  Sender: FDA-Public Use
  Company Number: None

PATIENT
  Age: 46 Year
  Sex: Female
  Weight: 56 kg

DRUGS (2)
  1. OXALIPLATIN [Suspect]
     Active Substance: OXALIPLATIN
     Indication: Colorectal cancer
     Dosage: 206 MG CALCULATED AS 130 MG/M2 BODY SURFACE AREA
     Dates: start: 20221020, end: 20221020
  2. ONDANSETRON [Concomitant]
     Active Substance: ONDANSETRON
     Indication: Premedication
     Dates: start: 20221020, end: 20221020

REACTIONS (5)
  - Speech disorder [Recovered/Resolved]
  - Neurological symptom [Recovered/Resolved]
  - Hypoaesthesia [Recovered/Resolved]
  - Suspected product quality issue [Unknown]
  - Muscular weakness [Recovered/Resolved]

NARRATIVE: CASE EVENT DATE: 20221020
